FAERS Safety Report 19444338 (Version 1)
Quarter: 2021Q2

REPORT INFORMATION
  Report Type: Report from Study
  Country: US (occurrence: US)
  Receive Date: 20210621
  Receipt Date: 20210621
  Transmission Date: 20210717
  Serious: Yes (Other)
  Sender: FDA-Public Use
  Company Number: US-TAKEDA-US201926837

PATIENT
  Sex: Female

DRUGS (1)
  1. CUVITRU [Suspect]
     Active Substance: HUMAN IMMUNOGLOBULIN G
     Indication: IMMUNODEFICIENCY COMMON VARIABLE
     Dosage: 8 GRAM, UNKNOWN
     Route: 065

REACTIONS (5)
  - Illness [Unknown]
  - Sinusitis [Unknown]
  - Malaise [Unknown]
  - Nausea [Unknown]
  - Impaired gastric emptying [Unknown]
